FAERS Safety Report 14090576 (Version 2)
Quarter: 2018Q1

REPORT INFORMATION
  Report Type: Spontaneous
  Country: AU (occurrence: AU)
  Receive Date: 20171015
  Receipt Date: 20180215
  Transmission Date: 20180508
  Serious: Yes (Other)
  Sender: FDA-Public Use
  Company Number: AU-TERSERA THERAPEUTICS, LLC-2030142

PATIENT
  Age: 34 Year
  Sex: Female

DRUGS (8)
  1. ZOLADEX [Suspect]
     Active Substance: GOSERELIN ACETATE
     Indication: PRODUCT USED FOR UNKNOWN INDICATION
     Route: 058
  2. DENOSUMAB [Concomitant]
     Active Substance: DENOSUMAB
  3. EVEROLIMUS. [Concomitant]
     Active Substance: EVEROLIMUS
  4. ABRAXANE [Concomitant]
     Active Substance: PACLITAXEL
  5. LYNPARZA [Suspect]
     Active Substance: OLAPARIB
     Route: 048
  6. NOVALDEX D [Suspect]
     Active Substance: TAMOXIFEN CITRATE
     Route: 048
  7. EXEMESTANE. [Concomitant]
     Active Substance: EXEMESTANE
  8. CARBOPLATIN. [Concomitant]
     Active Substance: CARBOPLATIN

REACTIONS (4)
  - Malignant neoplasm progression [Unknown]
  - Metastases to bone [Unknown]
  - Metastases to lung [Unknown]
  - Metastases to liver [Unknown]

NARRATIVE: CASE EVENT DATE: 2014
